FAERS Safety Report 16925883 (Version 3)
Quarter: 2019Q4

REPORT INFORMATION
  Report Type: Report from Study
  Country: DE (occurrence: DE)
  Receive Date: 20191016
  Receipt Date: 20191223
  Transmission Date: 20200122
  Serious: Yes (Death, Hospitalization, Other)
  Sender: FDA-Public Use
  Company Number: DE-BRISTOL-MYERS SQUIBB COMPANY-BMS-2019-097065

PATIENT
  Age: 65 Year
  Sex: Male

DRUGS (1)
  1. NIVOLUMAB [Suspect]
     Active Substance: NIVOLUMAB
     Indication: MALIGNANT MELANOMA
     Dosage: 300 MILLIGRAM, Q2WK
     Route: 042
     Dates: start: 20190820, end: 20190903

REACTIONS (9)
  - Respiratory failure [Fatal]
  - Troponin increased [Unknown]
  - Blood creatine phosphokinase increased [Recovered/Resolved]
  - Pneumonitis [Fatal]
  - Blood creatine phosphokinase MB increased [Unknown]
  - Colitis [Unknown]
  - Myositis [Unknown]
  - Autoimmune myocarditis [Unknown]
  - Myocardial infarction [Unknown]

NARRATIVE: CASE EVENT DATE: 20190917
